FAERS Safety Report 22909787 (Version 9)
Quarter: 2024Q1

REPORT INFORMATION
  Report Type: Spontaneous
  Country: CA (occurrence: CA)
  Receive Date: 20230906
  Receipt Date: 20240327
  Transmission Date: 20240409
  Serious: Yes (Hospitalization, Other)
  Sender: FDA-Public Use
  Company Number: CA-CELLTRION INC.-2023CA017286

PATIENT

DRUGS (10)
  1. INFLECTRA [Suspect]
     Active Substance: INFLIXIMAB-DYYB
     Indication: Crohn^s disease
     Dosage: 300 MG, W0, 2 6 AND Q8 WEEKS (MAINTENANCE: 300MG EVERY 8 WEEKS FOR 24 MONTHS)
     Route: 042
     Dates: start: 20230826
  2. INFLECTRA [Suspect]
     Active Substance: INFLIXIMAB-DYYB
     Dosage: 300 MG, W0, 2 6 AND Q8 WEEKS (1 WEEK AND 6 DAYS)
     Route: 042
     Dates: start: 20230908
  3. INFLECTRA [Suspect]
     Active Substance: INFLIXIMAB-DYYB
     Dosage: 300 MG, W0, 2 6 AND Q8 WEEKS (3 WEEKS AND 6 DAYS)
     Route: 042
     Dates: start: 20231005
  4. INFLECTRA [Suspect]
     Active Substance: INFLIXIMAB-DYYB
     Dosage: 300 MG, EVERY 8 WEEKS
     Route: 042
     Dates: start: 20231128
  5. INFLECTRA [Suspect]
     Active Substance: INFLIXIMAB-DYYB
     Dosage: 300 MG, EVERY 8 WEEKS
     Route: 042
     Dates: start: 20240123
  6. INFLECTRA [Suspect]
     Active Substance: INFLIXIMAB-DYYB
     Dosage: 300 MG, W0, 2 6 AND Q8 WEEKS (MAINTENANCE: 300MG EVERY 8 WEEKS FOR 24 MONTHS)
     Route: 042
     Dates: start: 202402, end: 202402
  7. INFLECTRA [Suspect]
     Active Substance: INFLIXIMAB-DYYB
     Dosage: 1 DF , DOSAGE INFO: UNKNOWNRESCUE DOSE
     Route: 042
     Dates: start: 202403, end: 202403
  8. INFLECTRA [Suspect]
     Active Substance: INFLIXIMAB-DYYB
     Dosage: 600 MG , EVERY 8 WEEKS
     Route: 042
     Dates: start: 20240319
  9. MESALAMINE [Concomitant]
     Active Substance: MESALAMINE
     Dosage: UNK
  10. PREDNISONE [Concomitant]
     Active Substance: PREDNISONE
     Dosage: UNK

REACTIONS (19)
  - Illness [Unknown]
  - Condition aggravated [Recovering/Resolving]
  - Pyrexia [Recovering/Resolving]
  - Heart rate irregular [Not Recovered/Not Resolved]
  - Pruritus [Unknown]
  - Anal fissure [Recovered/Resolved]
  - Weight increased [Recovered/Resolved]
  - Weight decreased [Unknown]
  - Arthralgia [Recovered/Resolved]
  - Pruritus [Recovered/Resolved with Sequelae]
  - Alopecia [Recovered/Resolved with Sequelae]
  - Lethargy [Unknown]
  - Aphthous ulcer [Not Recovered/Not Resolved]
  - Drug level below therapeutic [Not Recovered/Not Resolved]
  - Off label use [Unknown]
  - Off label use [Unknown]
  - Off label use [Unknown]
  - Intentional product use issue [Unknown]
  - Fistula [Unknown]

NARRATIVE: CASE EVENT DATE: 20230101
